FAERS Safety Report 21395083 (Version 1)
Quarter: 2022Q3

REPORT INFORMATION
  Report Type: Spontaneous
  Country: CN (occurrence: CN)
  Receive Date: 20220930
  Receipt Date: 20220930
  Transmission Date: 20221027
  Serious: Yes (Hospitalization, Other)
  Sender: FDA-Public Use
  Company Number: None

PATIENT
  Age: 85 Year
  Sex: Female
  Weight: 49.2 kg

DRUGS (10)
  1. CYCLOPHOSPHAMIDE [Suspect]
     Active Substance: CYCLOPHOSPHAMIDE
     Indication: Diffuse large B-cell lymphoma stage IV
     Dosage: 0.385 G, QD, ROUTE: MICROPUMP INTRAVENOUS BOLUS (0.9% SODIUM CHLORIDE INJECTION 40 ML, ONCE; R-CHOP
     Route: 040
     Dates: start: 20220915, end: 20220915
  2. SODIUM CHLORIDE [Suspect]
     Active Substance: SODIUM CHLORIDE
     Indication: Medication dilution
     Dosage: 40 ML, QD, ROUTE: MICROPUMP INTRAVENOUS BOLUS (0.9% SODIUM CHLORIDE INJECTION DILUTED WITH CYCLOPHOS
     Route: 040
     Dates: start: 20220915, end: 20220915
  3. SODIUM CHLORIDE [Suspect]
     Active Substance: SODIUM CHLORIDE
     Dosage: 200 ML, QD (0.9% SODIUM CHLORIDE INJECTION DILUTED WITH RITUXIMAB INJECTION 600 MG, ONCE)
     Route: 041
     Dates: start: 20220914, end: 20220914
  4. SODIUM CHLORIDE [Suspect]
     Active Substance: SODIUM CHLORIDE
     Dosage: 20 ML, QD, ROUTE: MICROPUMP INTRAVENOUS BOLUS (0.9% SODIUM CHLORIDE INJECTION DILUTED WITH VINDESINE
     Route: 040
     Dates: start: 20220915, end: 20220915
  5. SODIUM CHLORIDE [Suspect]
     Active Substance: SODIUM CHLORIDE
     Dosage: 100 ML, QD (0.9% SODIUM CHLORIDE INJECTION DILUTED WITH DEXAMETHASONE SODIUM PHOSPHATE 13.3 MG)
     Route: 041
     Dates: start: 20220915, end: 20220916
  6. DEXTROSE MONOHYDRATE [Suspect]
     Active Substance: DEXTROSE MONOHYDRATE
     Indication: Medication dilution
     Dosage: 250 ML, QD (5% GLUCOSE INJECTION DILUTED WITH DOXORUBICIN LIPOSOME INJECTION 20 MG)
     Route: 041
     Dates: start: 20220915, end: 20220915
  7. RITUXIMAB [Suspect]
     Active Substance: RITUXIMAB
     Indication: Diffuse large B-cell lymphoma stage IV
     Dosage: 600 MG, QD (DILUTED WITH 0.9% SODIUM CHLORIDE INJECTION 200 ML, ONCE; R-CHOP REGIMEN)
     Route: 041
     Dates: start: 20220914, end: 20220914
  8. VINDESINE SULFATE [Suspect]
     Active Substance: VINDESINE SULFATE
     Indication: Diffuse large B-cell lymphoma stage IV
     Dosage: 2 MG, QD, ROUTE: MICROPUMP INTRAVENOUS BOLUS (XIAIKE DILUTED WITH 0.9% SODIUM CHLORIDE INJECTION 20
     Route: 040
     Dates: start: 20220915, end: 20220915
  9. DOXORUBICIN HYDROCHLORIDE [Suspect]
     Active Substance: DOXORUBICIN HYDROCHLORIDE
     Indication: Diffuse large B-cell lymphoma stage IV
     Dosage: 20 MG, QD (RIBALDO DILUTED WITH 5% GLUCOSE INJECTION 250 ML, ONCE; R-CHOP REGIMEN)
     Route: 041
     Dates: start: 20220915, end: 20220915
  10. DEXAMETHASONE SODIUM PHOSPHATE [Suspect]
     Active Substance: DEXAMETHASONE SODIUM PHOSPHATE
     Indication: Diffuse large B-cell lymphoma stage IV
     Dosage: 13.3 MG, QD (DILUTED WITH 0.9% SODIUM CHLORIDE INJECTION 100 ML; R-CHOP REGIMEN)
     Route: 041
     Dates: start: 20220915, end: 20220916

REACTIONS (1)
  - Myelosuppression [Recovering/Resolving]

NARRATIVE: CASE EVENT DATE: 20220915
